FAERS Safety Report 11766317 (Version 2)
Quarter: 2015Q4

REPORT INFORMATION
  Report Type: Spontaneous
  Country: IT (occurrence: IT)
  Receive Date: 20151123
  Receipt Date: 20151208
  Transmission Date: 20160304
  Serious: Yes (Death)
  Sender: FDA-Public Use
  Company Number: IT-CIPLA LTD.-2015IT08632

PATIENT

DRUGS (4)
  1. GRANULOCYTE STIMULATING FACTOR [Suspect]
     Active Substance: GRANULOCYTE COLONY-STIMULATING FACTOR NOS
     Indication: SOFT TISSUE SARCOMA
     Dosage: 300 MICROGRAM/D (STARTING DAY 7 TO DAY 14 )
     Route: 065
  2. MESNA. [Suspect]
     Active Substance: MESNA
     Indication: SOFT TISSUE SARCOMA
     Dosage: 1,000 MG/M2 THREE TIMES PER DAY ON DAYS 1, 2, AND 3
     Route: 065
  3. EPIRUBICIN [Suspect]
     Active Substance: EPIRUBICIN
     Indication: SOFT TISSUE SARCOMA
     Dosage: 60 MG/M2 PER DAY ON DAYS 1 AND 2
     Route: 042
  4. IFOSFAMIDE. [Suspect]
     Active Substance: IFOSFAMIDE
     Indication: SOFT TISSUE SARCOMA
     Dosage: 3,000 MG/M2 PER DAY ON DAYS 1, 2 AND 3
     Route: 065

REACTIONS (1)
  - Death [Fatal]
